FAERS Safety Report 17872853 (Version 5)
Quarter: 2022Q2

REPORT INFORMATION
  Report Type: Spontaneous
  Country: IT (occurrence: IT)
  Receive Date: 20200608
  Receipt Date: 20220405
  Transmission Date: 20220721
  Serious: Yes (Death, Life-Threatening, Hospitalization, Disabling, Other)
  Sender: FDA-Public Use
  Company Number: IT-MLMSERVICE-20200528-2323667-1

PATIENT
  Age: 69 Year
  Sex: Female

DRUGS (5)
  1. VINCRISTINE SULFATE [Suspect]
     Active Substance: VINCRISTINE SULFATE
     Indication: Primary gastrointestinal follicular lymphoma
     Dosage: 1.4 MG/M2, CYCLIC (EVERY 21 DAYS, ON DAY 1)
     Dates: end: 201603
  2. DOXORUBICIN HYDROCHLORIDE [Suspect]
     Active Substance: DOXORUBICIN HYDROCHLORIDE
     Indication: Primary gastrointestinal follicular lymphoma
     Dosage: 50 MG/M2, CYCLIC (EVERY 21 DAYS, ON DAY 1)
     Dates: end: 201603
  3. CYCLOPHOSPHAMIDE [Suspect]
     Active Substance: CYCLOPHOSPHAMIDE
     Indication: Primary gastrointestinal follicular lymphoma
     Dosage: 750 MG/M2, CYCLIC (EVERY 21 DAYS, ON DAY 1)
     Dates: end: 201603
  4. PREDNISONE [Suspect]
     Active Substance: PREDNISONE
     Indication: Primary gastrointestinal follicular lymphoma
     Dosage: 40 MG/M2, CYCLIC (EVERY 21 DAYS, ON DAYS 1 AND 5)
     Dates: end: 201603
  5. RITUXIMAB [Suspect]
     Active Substance: RITUXIMAB
     Indication: Primary gastrointestinal follicular lymphoma
     Dosage: 375 MG/M2, CYCLIC (BEFORE CYCLE 1, 2, 3, AND 5 OF CHOP ON DAY 1, 4 CYCLICALS)

REACTIONS (2)
  - JC virus infection [Fatal]
  - Progressive multifocal leukoencephalopathy [Fatal]

NARRATIVE: CASE EVENT DATE: 20160701
